FAERS Safety Report 4351082-7 (Version None)
Quarter: 2004Q2

REPORT INFORMATION
  Report Type: 
  Country: None (occurrence: None)
  Receive Date: 20040427
  Receipt Date: 20040419
  Transmission Date: 20050107
  Serious: Yes (Other)
  Sender: FDA-Public Use
  Company Number: FR-JNJFOC-20040202207

PATIENT
  Age: 68 Year
  Sex: Male
  Weight: 78 kg

DRUGS (9)
  1. REMICADE [Suspect]
     Indication: RHEUMATOID ARTHRITIS
     Dosage: INTRAVENOUS
     Route: 042
     Dates: start: 20030301
  2. PREDNISONE TAB [Suspect]
     Indication: RHEUMATOID ARTHRITIS
     Dosage: 10MG - 7.5MG
  3. ARAVA [Suspect]
     Indication: RHEUMATOID ARTHRITIS
     Dosage: 20 MG, 1 IN 1 DAY, ORAL
     Route: 048
     Dates: end: 20031016
  4. TRAMADOL HCL [Concomitant]
  5. FOSAMAX [Concomitant]
  6. LASIX [Concomitant]
  7. INDAPAMIDE [Concomitant]
  8. CYTOTEC [Concomitant]
  9. ZAMIDIP (ALL OTHER THERAPEUTIC PRODUCTS) TABLETS [Concomitant]

REACTIONS (4)
  - ARTHRITIS BACTERIAL [None]
  - POST PROCEDURAL COMPLICATION [None]
  - SEPTIC SHOCK [None]
  - STREPTOCOCCAL INFECTION [None]
